FAERS Safety Report 8402220-8 (Version None)
Quarter: 2012Q2

REPORT INFORMATION
  Report Type: 
  Country: None (occurrence: None)
  Receive Date: 20120529
  Receipt Date: 20040126
  Transmission Date: 20120825
  Serious: Yes (Death)
  Sender: FDA-Public Use
  Company Number: 02100-JPN-04-0018

PATIENT
  Age: 82 Year
  Sex: Female
  Weight: 41 kg

DRUGS (7)
  1. NORVASC [Concomitant]
  2. CALCIUM CARBONATE [Concomitant]
  3. LENDORMIN (BROTIZOLAM) TABLET [Concomitant]
  4. PLETAL [Suspect]
     Indication: ARTERIAL OCCLUSIVE DISEASE
     Dosage: 50 MG, TID, ORAL
     Route: 048
     Dates: start: 20040109, end: 20040112
  5. DIOVAN [Concomitant]
  6. ASPIRIN [Concomitant]
  7. PURSENNID (SENNOSIDE) TABLET [Concomitant]

REACTIONS (5)
  - SUDDEN DEATH [None]
  - FLUID OVERLOAD [None]
  - BLOOD PRESSURE DECREASED [None]
  - ALTERED STATE OF CONSCIOUSNESS [None]
  - CARDIAC FAILURE [None]
